FAERS Safety Report 22261858 (Version 1)
Quarter: 2023Q2

REPORT INFORMATION
  Report Type: Spontaneous
  Country: GB (occurrence: GB)
  Receive Date: 20230428
  Receipt Date: 20230428
  Transmission Date: 20230721
  Serious: Yes (Hospitalization, Other)
  Sender: FDA-Public Use
  Company Number: GB-BRISTOL-MYERS SQUIBB COMPANY-2023-059948

PATIENT
  Age: 75 Year
  Sex: Female

DRUGS (1)
  1. OPDIVO [Suspect]
     Active Substance: NIVOLUMAB
     Indication: Colorectal cancer metastatic
     Dates: start: 20200124, end: 20220922

REACTIONS (1)
  - Dementia [Unknown]

NARRATIVE: CASE EVENT DATE: 20230110
